FAERS Safety Report 23576162 (Version 1)
Quarter: 2024Q1

REPORT INFORMATION
  Report Type: Spontaneous
  Country: US (occurrence: US)
  Receive Date: 20240228
  Receipt Date: 20240228
  Transmission Date: 20240410
  Serious: No
  Sender: FDA-Public Use
  Company Number: US-GENMAB-2024-00238

PATIENT
  Age: 33 Year
  Sex: Male
  Weight: 95.5 kg

DRUGS (1)
  1. EPKINLY [Suspect]
     Active Substance: EPCORITAMAB-BYSP
     Indication: Diffuse large B-cell lymphoma refractory
     Dosage: UNK (C1D1 DOSE)
     Route: 058
     Dates: start: 202401

REACTIONS (11)
  - Red blood cell count decreased [Unknown]
  - Haematocrit decreased [Unknown]
  - Blood calcium decreased [Unknown]
  - Protein total decreased [Unknown]
  - Blood urea increased [Unknown]
  - Blood glucose increased [Unknown]
  - Blood chloride increased [Unknown]
  - Blood creatinine increased [Unknown]
  - Haemoglobin decreased [Unknown]
  - Product dose omission issue [Not Recovered/Not Resolved]
  - Intercepted product preparation error [Unknown]

NARRATIVE: CASE EVENT DATE: 20240125
